FAERS Safety Report 16516828 (Version 1)
Quarter: 2019Q3

REPORT INFORMATION
  Report Type: Spontaneous
  Country: FR (occurrence: FR)
  Receive Date: 20190702
  Receipt Date: 20190702
  Transmission Date: 20191004
  Serious: Yes (Hospitalization)
  Sender: FDA-Public Use
  Company Number: FR-MYLANLABS-2019M1059485

PATIENT
  Age: 77 Year
  Sex: Female
  Weight: 60 kg

DRUGS (6)
  1. HYDROCHLOROTHIAZIDE. [Interacting]
     Active Substance: HYDROCHLOROTHIAZIDE
     Indication: HYPERTENSION
     Dosage: 12.5 MILLIGRAM, QD
     Route: 048
     Dates: end: 20181225
  2. PARACETAMOL [Concomitant]
     Active Substance: ACETAMINOPHEN
     Dosage: 4 GRAM, QD
     Route: 048
     Dates: end: 20181225
  3. IRBESARTAN. [Suspect]
     Active Substance: IRBESARTAN
     Indication: PRODUCT USED FOR UNKNOWN INDICATION
     Dosage: UNK
     Route: 048
     Dates: end: 20181225
  4. TEGELINE [Interacting]
     Active Substance: HUMAN IMMUNOGLOBULIN G
     Indication: PRODUCT USED FOR UNKNOWN INDICATION
     Dosage: 30 GRAM, QD
     Route: 041
     Dates: start: 20181222, end: 20181225
  5. SIMVASTATINE [Concomitant]
     Active Substance: SIMVASTATIN
     Route: 048
     Dates: end: 20181225
  6. KARDEGIC [Concomitant]
     Active Substance: ASPIRIN DL-LYSINE
     Indication: MYELOFIBROSIS
     Dosage: 75 MILLIGRAM, QD
     Route: 048
     Dates: end: 20181225

REACTIONS (2)
  - Acute kidney injury [Recovered/Resolved]
  - Drug interaction [Unknown]

NARRATIVE: CASE EVENT DATE: 20181226
